FAERS Safety Report 8255496-4 (Version None)
Quarter: 2012Q1

REPORT INFORMATION
  Report Type: 
  Country: None (occurrence: None)
  Receive Date: 20120330
  Receipt Date: 20111115
  Transmission Date: 20120608
  Serious: Yes (Other)
  Sender: FDA-Public Use
  Company Number: GGEL20111101435

PATIENT
  Age: 81 Year
  Sex: Female

DRUGS (5)
  1. CARBIDOPA/LEVODOPA (CARBIDOPA, LEVODOPA) (CARBIDOPA, LEVODOPA) [Concomitant]
  2. GABAPENTIN [Suspect]
     Indication: BIPOLAR DISORDER
     Dosage: 800 MILLIGRAM, 2 IN 1 D
  3. ATIVAN [Concomitant]
  4. LITHIUM CARBONATE [Concomitant]
  5. ARIPIPRAZOLE (ARIPIPRAZOLE) (ARIPIPRAZOLE) [Concomitant]

REACTIONS (17)
  - DROOLING [None]
  - HYPERTENSIVE CRISIS [None]
  - DRUG WITHDRAWAL SYNDROME [None]
  - DISORIENTATION [None]
  - INSOMNIA [None]
  - INFLUENZA LIKE ILLNESS [None]
  - OROPHARYNGEAL PAIN [None]
  - PAIN [None]
  - COUGH [None]
  - MENTAL STATUS CHANGES [None]
  - CHEST PAIN [None]
  - JUDGEMENT IMPAIRED [None]
  - ASTHENIA [None]
  - ANTIPSYCHOTIC DRUG LEVEL INCREASED [None]
  - RESPIRATORY DISORDER [None]
  - FLUID INTAKE REDUCED [None]
  - DYSARTHRIA [None]
